FAERS Safety Report 21093041 (Version 1)
Quarter: 2022Q3

REPORT INFORMATION
  Report Type: Spontaneous
  Country: US (occurrence: US)
  Receive Date: 20220718
  Receipt Date: 20220718
  Transmission Date: 20221027
  Serious: Yes (Other)
  Sender: FDA-Public Use
  Company Number: US-SA-SAC20220715000682

PATIENT
  Sex: Male
  Weight: 104.31 kg

DRUGS (18)
  1. DUPIXENT [Suspect]
     Active Substance: DUPILUMAB
     Indication: Dermatitis atopic
     Dosage: 300 MG QOW
     Route: 058
     Dates: start: 201912
  2. DUPIXENT [Suspect]
     Active Substance: DUPILUMAB
     Indication: Illness
  3. ALBUTEROL SULFATE [Concomitant]
     Active Substance: ALBUTEROL SULFATE
  4. VITAMIN C [Concomitant]
     Active Substance: ASCORBIC ACID
  5. AUGMENTIN [Concomitant]
     Active Substance: AMOXICILLIN\CLAVULANATE POTASSIUM
     Dosage: AUGMENTIN XR 1000-62.5 TAB.SR 12H
  6. ACETAMINOPHEN\HYDROCODONE [Concomitant]
     Active Substance: ACETAMINOPHEN\HYDROCODONE
  7. KETOTIFEN FUMARATE [Concomitant]
     Active Substance: KETOTIFEN FUMARATE
  8. HYDROCHLOROTHIAZIDE\LISINOPRIL [Concomitant]
     Active Substance: HYDROCHLOROTHIAZIDE\LISINOPRIL
  9. IMITREX [Concomitant]
     Active Substance: SUMATRIPTAN SUCCINATE
     Dosage: UNK
  10. VALIUM [Concomitant]
     Active Substance: DIAZEPAM
     Dosage: UNK
  11. ATORVASTATIN CALCIUM [Concomitant]
     Active Substance: ATORVASTATIN CALCIUM
     Dosage: UNK
  12. DULERA [Concomitant]
     Active Substance: FORMOTEROL FUMARATE DIHYDRATE\MOMETASONE FUROATE
     Dosage: DULERA 200-5 MCG HFA AER AD
  13. ZYRTEC [Concomitant]
     Active Substance: CETIRIZINE HYDROCHLORIDE
  14. MODERNA COVID-19 VACCINE [Concomitant]
     Active Substance: ELASOMERAN
     Indication: Immunisation
  15. DOCUSATE SODIUM [Concomitant]
     Active Substance: DOCUSATE SODIUM
  16. METOPROLOL SUCCINATE [Concomitant]
     Active Substance: METOPROLOL SUCCINATE
     Dosage: UNK
  17. OMEPRAZOLE [Concomitant]
     Active Substance: OMEPRAZOLE
  18. VAXELIS [Concomitant]
     Active Substance: DIPHTHERIA AND TETANUS TOXOIDS AND ACELLULAR PERTUSSIS ADSORBED, INACTIVATED POLIOVIRUS AND HAEMOPHI
     Dosage: VAXELIS 15-5-10 SYRINGE

REACTIONS (2)
  - Pneumonia [Unknown]
  - Product use in unapproved indication [Unknown]

NARRATIVE: CASE EVENT DATE: 20191201
